FAERS Safety Report 5407077-5 (Version None)
Quarter: 2007Q3

REPORT INFORMATION
  Report Type: 
  Country: None (occurrence: None)
  Receive Date: 20070807
  Receipt Date: 20070731
  Transmission Date: 20080115
  Serious: Yes (Hospitalization)
  Sender: FDA-Public Use
  Company Number: US-JNJFOC-20070505358

PATIENT
  Age: 12 Year
  Sex: Male

DRUGS (4)
  1. RISPERDAL [Suspect]
     Indication: AUTISM
     Route: 048
  2. CLONIDINE [Suspect]
  3. CLONIDINE [Suspect]
     Indication: IMPULSIVE BEHAVIOUR
  4. DEPAKOTE [Concomitant]
     Indication: AGGRESSION

REACTIONS (1)
  - BRADYCARDIA [None]
